FAERS Safety Report 18376940 (Version 4)
Quarter: 2020Q4

REPORT INFORMATION
  Report Type: Spontaneous
  Country: US (occurrence: US)
  Receive Date: 20201013
  Receipt Date: 20201124
  Transmission Date: 20210114
  Serious: Yes (Other)
  Sender: FDA-Public Use
  Company Number: US-PFIZER INC-2020387457

PATIENT
  Age: 43 Year
  Sex: Female
  Weight: 78.47 kg

DRUGS (1)
  1. DEPO-PROVERA [Suspect]
     Active Substance: MEDROXYPROGESTERONE ACETATE
     Indication: CONTRACEPTION
     Dosage: 1 DF, CYCLIC(104MG/0.65ML, ONE DOSE EVERY TWELVE WEEKS)

REACTIONS (4)
  - Incorrect dose administered by device [Unknown]
  - Vaginal haemorrhage [Unknown]
  - Wrong technique in device usage process [Unknown]
  - Device issue [Unknown]

NARRATIVE: CASE EVENT DATE: 20201002
